FAERS Safety Report 7445209-8 (Version None)
Quarter: 2011Q2

REPORT INFORMATION
  Report Type: 
  Country: None (occurrence: None)
  Receive Date: 20110429
  Receipt Date: 20110407
  Transmission Date: 20111010
  Serious: Yes (Hospitalization)
  Sender: FDA-Public Use
  Company Number: JP-AMGEN-US336949

PATIENT
  Age: 81 Year
  Sex: Female
  Weight: 39 kg

DRUGS (32)
  1. ETANERCEPT [Suspect]
     Dosage: 50 MG, QWK
     Route: 058
     Dates: start: 20101120, end: 20110216
  2. ALFACALCIDOL [Concomitant]
     Dosage: 1 A?G, QD
     Route: 048
  3. MYSLEE [Concomitant]
     Dosage: 10 MG, QD
     Route: 048
  4. D ALFA [Concomitant]
     Dosage: UNK
  5. PREDNISOLONE [Suspect]
     Dosage: 4 MG, QD
     Route: 048
     Dates: start: 20080524, end: 20090715
  6. FOLIC ACID [Concomitant]
     Dosage: 5 MG, QWK
     Route: 048
  7. LOXONIN                            /00890702/ [Concomitant]
     Indication: RHEUMATOID ARTHRITIS
     Route: 048
  8. CRESTOR [Concomitant]
     Route: 048
  9. PREDNISOLONE [Suspect]
     Dosage: 2.5 MG, QD
     Route: 048
     Dates: start: 20091227, end: 20100923
  10. METHOTREXATE [Suspect]
     Indication: RHEUMATOID ARTHRITIS
     Dosage: 6.0 MG, WEEKLY
     Route: 048
  11. LIPITOR [Concomitant]
     Route: 048
  12. REBAMIPIDE [Concomitant]
  13. PREDNISOLONE [Suspect]
     Dosage: 2 MG, A DAY
     Route: 048
     Dates: start: 20100924
  14. FOSAMAX [Concomitant]
     Route: 048
  15. KETOPROFEN [Concomitant]
     Route: 065
  16. ETANERCEPT [Suspect]
     Indication: RHEUMATOID ARTHRITIS
     Dosage: 25 MG, 2 TIMES/WK
     Route: 058
     Dates: start: 20080402, end: 20080710
  17. ETANERCEPT [Suspect]
     Dosage: 25 MG, 2 TIMES/WK
     Route: 058
     Dates: start: 20100219, end: 20101119
  18. MUCOSTA [Concomitant]
     Route: 048
  19. BASEN [Concomitant]
     Route: 048
  20. ETANERCEPT [Suspect]
     Dosage: 25 MG, 2 TIMES/WK
     Route: 058
     Dates: start: 20100209, end: 20100216
  21. PREDNISOLONE [Suspect]
     Dosage: 3 MG, QD
     Route: 048
     Dates: start: 20090911, end: 20091226
  22. ETANERCEPT [Suspect]
     Dosage: 25 MG, QWK
     Dates: start: 20091027, end: 20091208
  23. ETANERCEPT [Suspect]
     Dosage: 25 MG, 2 TIMES/WK
     Route: 058
     Dates: start: 20091211, end: 20091226
  24. ETANERCEPT [Suspect]
     Dosage: 50 MG, QWK
     Route: 058
     Dates: start: 20110308, end: 20110331
  25. PREDNISOLONE [Suspect]
     Dosage: UNSPECIFIED
     Route: 048
     Dates: start: 20090716, end: 20090910
  26. ETANERCEPT [Suspect]
     Dosage: 25 MG, 2 TIMES/WK
     Dates: start: 20080901, end: 20081020
  27. ETANERCEPT [Suspect]
     Dosage: 25 MG, 2 TIMES/WK
     Dates: start: 20081119, end: 20090622
  28. ETANERCEPT [Suspect]
     Dosage: 25 MG, 2 TIMES/WK
     Dates: start: 20090721, end: 20091026
  29. ETANERCEPT [Suspect]
     Dosage: 25 MG, 2 TIMES/WK
     Route: 058
     Dates: start: 20091229, end: 20100202
  30. PREDNISOLONE [Suspect]
     Indication: RHEUMATOID ARTHRITIS
     Dosage: 5 MG, QD
     Route: 048
     Dates: start: 20020101, end: 20080523
  31. ASPARTATE CALCIUM [Concomitant]
     Dosage: 1200 MG, QD
     Route: 048
  32. GLAKAY [Concomitant]
     Route: 048

REACTIONS (4)
  - RHEUMATOID ARTHRITIS [None]
  - HUMERUS FRACTURE [None]
  - BACTERAEMIA [None]
  - CELLULITIS [None]
